FAERS Safety Report 6399820-6 (Version None)
Quarter: 2009Q4

REPORT INFORMATION
  Report Type: 
  Country: None (occurrence: None)
  Receive Date: 20091007
  Receipt Date: 20091007
  Transmission Date: 20100525
  Serious: No
  Sender: FDA-Public Use
  Company Number: None

PATIENT
  Sex: Female
  Weight: 79.3795 kg

DRUGS (4)
  1. BUPROPION HCL [Suspect]
     Indication: DEPRESSION
     Dosage: 100MG TID ORALLY
     Route: 048
     Dates: start: 20090601
  2. BUPROPION HCL [Suspect]
     Dosage: ORALLY
     Route: 048
  3. CELEXA [Concomitant]
  4. LEXAPRO [Concomitant]

REACTIONS (8)
  - ANXIETY [None]
  - DEPRESSION [None]
  - DYSPNOEA [None]
  - NAUSEA [None]
  - PRODUCT SUBSTITUTION ISSUE [None]
  - PRURITUS [None]
  - URTICARIA [None]
  - VOMITING [None]
